FAERS Safety Report 17976742 (Version 6)
Quarter: 2022Q3

REPORT INFORMATION
  Report Type: Spontaneous
  Country: DE (occurrence: DE)
  Receive Date: 20200703
  Receipt Date: 20220723
  Transmission Date: 20221027
  Serious: Yes (Hospitalization, Other)
  Sender: FDA-Public Use
  Company Number: DE-ACCORD-186259

PATIENT
  Age: 61 Year
  Sex: Female
  Weight: 90 kg

DRUGS (19)
  1. AMLODIPINE [Interacting]
     Active Substance: AMLODIPINE BESYLATE
     Indication: Hypertension
     Dosage: 10 MILLIGRAM, ONCE A DAY
     Route: 065
  2. BISOPROLOL [Interacting]
     Active Substance: BISOPROLOL
     Indication: Hypertension
     Dosage: 10 MILLIGRAM, ONCE A DAY
     Route: 065
  3. DOXAZOSIN [Interacting]
     Active Substance: DOXAZOSIN MESYLATE
     Indication: Hypertension
     Dosage: 16 MILLIGRAM, ONCE A DAY
     Route: 065
  4. VALSARTAN [Interacting]
     Active Substance: VALSARTAN
     Indication: Hypertension
     Dosage: 320 MILLIGRAM, ONCE A DAY
     Route: 065
  5. CHLORTHALIDONE [Suspect]
     Active Substance: CHLORTHALIDONE
     Indication: Hypertension
     Dosage: 25 MILLIGRAM, ONCE A DAY
     Route: 065
  6. CLONIDINE [Suspect]
     Active Substance: CLONIDINE
     Indication: Hypertension
     Dosage: 175 MICROGRAM, ONCE A DAY
     Route: 065
  7. CLONIDINE [Suspect]
     Active Substance: CLONIDINE
     Dosage: 475 MICROGRAM, ONCE A DAY
     Route: 065
  8. DIHYDRALAZINE [Interacting]
     Active Substance: DIHYDRALAZINE
     Indication: Hypertension
     Dosage: UNK
     Route: 065
  9. NITRENDIPINE [Interacting]
     Active Substance: NITRENDIPINE
     Indication: Hypertension
     Dosage: UNK
     Route: 065
  10. RIFAMPIN [Interacting]
     Active Substance: RIFAMPIN
     Indication: Anti-infective therapy
     Dosage: UNK
     Route: 065
  11. RIFAMPIN [Interacting]
     Active Substance: RIFAMPIN
     Indication: Device related infection
  12. URAPIDIL [Suspect]
     Active Substance: URAPIDIL
     Indication: Hypertension
     Dosage: 520 MILLIGRAM, ONCE A DAY(530 MG, 610 MG, 860 MG, 940 MG, 790MG, 670 MG. 620 MG, 200 MG, 190 MG)
     Route: 065
  13. DIHYDRALAZINE [Concomitant]
     Active Substance: DIHYDRALAZINE
     Indication: Hypertension
     Dosage: UNK
     Route: 065
  14. MEROPENEM [Concomitant]
     Active Substance: MEROPENEM
     Indication: Device related infection
     Dosage: UNK
     Route: 065
  15. MEROPENEM [Concomitant]
     Active Substance: MEROPENEM
     Indication: Anti-infective therapy
  16. NITRENDIPINE [Concomitant]
     Active Substance: NITRENDIPINE
     Indication: Hypertension
     Dosage: UNK
     Route: 065
  17. VANCOMYCIN [Concomitant]
     Active Substance: VANCOMYCIN
     Indication: Device related infection
     Dosage: UNK
     Route: 065
  18. VANCOMYCIN [Concomitant]
     Active Substance: VANCOMYCIN
     Indication: Anti-infective therapy
  19. CHLORTHALIDONE [Concomitant]
     Active Substance: CHLORTHALIDONE
     Indication: Hypertension
     Dosage: 25 MILLIGRAM ONCE A DAY
     Route: 065

REACTIONS (7)
  - Hypertensive crisis [Recovered/Resolved]
  - Blood pressure increased [Recovered/Resolved]
  - Drug interaction [Recovered/Resolved]
  - Hypertension [Recovered/Resolved]
  - Condition aggravated [Recovered/Resolved]
  - Drug ineffective [Unknown]
  - Off label use [Unknown]
